FAERS Safety Report 10244941 (Version 2)
Quarter: 2014Q2

REPORT INFORMATION
  Report Type: Spontaneous
  Country: US (occurrence: US)
  Receive Date: 20140618
  Receipt Date: 20140618
  Transmission Date: 20141212
  Serious: No
  Sender: FDA-Public Use
  Company Number: US-GALDERMA-US14000841

PATIENT
  Age: 60 Year
  Sex: Female

DRUGS (5)
  1. MIRVASO (BRIMONIDINE) TOPICAL GEL, 0.33% [Suspect]
     Indication: ROSACEA
     Dosage: 0.33%
     Route: 061
     Dates: start: 20131226, end: 201402
  2. CERAVE CLEANSER [Concomitant]
     Indication: THERAPEUTIC SKIN CARE TOPICAL
     Route: 061
     Dates: start: 2011
  3. DOXYCYCLINE HYCLATE [Concomitant]
     Dosage: 150 MG
     Route: 048
     Dates: start: 201312
  4. LISINOPRIL [Concomitant]
     Dosage: 20 MG
     Route: 048
     Dates: start: 2009
  5. ACTONEL [Concomitant]
     Dosage: 150 MG
     Route: 048
     Dates: start: 201312

REACTIONS (7)
  - Feeling hot [Recovered/Resolved]
  - Skin discomfort [Recovered/Resolved]
  - Skin injury [Recovered/Resolved]
  - Skin burning sensation [Recovered/Resolved]
  - Erythema [Recovered/Resolved]
  - Drug ineffective [Recovered/Resolved]
  - Flushing [Recovered/Resolved]
